FAERS Safety Report 9990130 (Version 1)
Quarter: 2013Q4

REPORT INFORMATION
  Report Type: Spontaneous
  Country: FR (occurrence: None)
  Receive Date: 20131119
  Receipt Date: 20131119
  Transmission Date: 20140711
  Serious: Yes (Death)
  Sender: FDA-Public Use
  Company Number: 2013038850

PATIENT
  Sex: Male

DRUGS (11)
  1. IMMUNOGLOBULINS [Suspect]
     Indication: PNEUMONIA MEASLES
     Dosage: 1 G/KG/DAY FOR 2 DAYS INTRAVENOUS (NOT OTHERWISE SPECIFIED)
     Route: 042
  2. IMMUNOGLOBULINS [Suspect]
     Dosage: 1 G/KG/DAY FOR 2 DAYS INTRAVENOUS (NOT OTHERWISE SPECIFIED)
     Route: 042
  3. RIBAVIRIN (RIBAVIRIN) [Concomitant]
  4. BLEOMYCIN (BLEOMYCIN) [Concomitant]
  5. ETOPOSIDE (ETOPOSIDE) [Concomitant]
  6. DOXORUBICIN (DOXORUBICIN) [Concomitant]
  7. CYCLOPHOSPHAMIDE (CYCLOPHOSPHAMIDE) [Concomitant]
  8. VINCRISTINE (VINCRISTINE) [Concomitant]
  9. PROCARBAZINE (PROCARBAZINE) [Concomitant]
  10. PREDNISONE (PREDNISONE) [Concomitant]
  11. GALENIC /PIPERACILLIN/TAZOBACTAM (PIP/TAZO) [Concomitant]

REACTIONS (11)
  - Pneumonia measles [None]
  - Condition aggravated [None]
  - Drug ineffective for unapproved indication [None]
  - Acute respiratory failure [None]
  - Drug ineffective [None]
  - Haemolytic anaemia [None]
  - Pneumonia [None]
  - Pseudomonas test positive [None]
  - Hypotension [None]
  - Metabolic acidosis [None]
  - Propofol infusion syndrome [None]
